FAERS Safety Report 6294445-5 (Version None)
Quarter: 2009Q3

REPORT INFORMATION
  Report Type: 
  Country: None (occurrence: None)
  Receive Date: 20090803
  Receipt Date: 20090722
  Transmission Date: 20100115
  Serious: Yes (Death, Other)
  Sender: FDA-Public Use
  Company Number: DE-ROCHE-647141

PATIENT
  Sex: Female
  Weight: 60 kg

DRUGS (1)
  1. MIRCERA [Suspect]
     Route: 042
     Dates: start: 20090112, end: 20090429

REACTIONS (2)
  - DEATH [None]
  - HAEMOGLOBIN DECREASED [None]
